FAERS Safety Report 9060469 (Version 5)
Quarter: 2014Q3

REPORT INFORMATION
  Report Type: Spontaneous
  Country: US (occurrence: US)
  Receive Date: 20130212
  Receipt Date: 20140827
  Transmission Date: 20150326
  Serious: Yes (Hospitalization)
  Sender: FDA-Public Use
  Company Number: US-009507513-1302USA004222

PATIENT
  Sex: Female
  Weight: 92.97 kg

DRUGS (2)
  1. NUVARING [Suspect]
     Active Substance: ETHINYL ESTRADIOL\ETONOGESTREL
     Dosage: UNK
     Route: 067
     Dates: end: 20110207
  2. NUVARING [Suspect]
     Active Substance: ETHINYL ESTRADIOL\ETONOGESTREL
     Indication: CONTRACEPTION
     Dosage: UNK
     Route: 067
     Dates: start: 2007, end: 200810

REACTIONS (17)
  - Skin disorder [Unknown]
  - Ligament sprain [Unknown]
  - Road traffic accident [Unknown]
  - Back pain [Unknown]
  - Hypoxia [Unknown]
  - Back pain [Not Recovered/Not Resolved]
  - Bipolar disorder [Unknown]
  - Pleural effusion [Unknown]
  - Deep vein thrombosis [Recovered/Resolved]
  - Mood altered [Unknown]
  - Panic attack [Recovered/Resolved]
  - Drug dependence [Unknown]
  - Gait disturbance [Unknown]
  - Dysthymic disorder [Unknown]
  - Pneumonia [Unknown]
  - Varicose vein [Unknown]
  - Leukocytosis [Unknown]

NARRATIVE: CASE EVENT DATE: 200809
